FAERS Safety Report 14734315 (Version 1)
Quarter: 2018Q2

REPORT INFORMATION
  Report Type: Spontaneous
  Country: US (occurrence: US)
  Receive Date: 20180403
  Receipt Date: 20180403
  Transmission Date: 20180711
  Serious: Yes (Other)
  Sender: FDA-Public Use
  Company Number: None

PATIENT
  Age: 6 Year
  Sex: Female
  Weight: 29.1 kg

DRUGS (1)
  1. BUPHENYL [Suspect]
     Active Substance: SODIUM PHENYLBUTYRATE
     Indication: ORNITHINE TRANSCARBAMOYLASE DEFICIENCY
     Dosage: ?          OTHER ROUTE:VIA G TUBE?

REACTIONS (3)
  - Infusion related reaction [None]
  - Abdominal pain [None]
  - Product substitution issue [None]

NARRATIVE: CASE EVENT DATE: 20170226
